FAERS Safety Report 9011067 (Version 1)
Quarter: 2013Q1

REPORT INFORMATION
  Report Type: Spontaneous
  Country: GB (occurrence: GB)
  Receive Date: 20130109
  Receipt Date: 20130109
  Transmission Date: 20140127
  Serious: Yes (Other)
  Sender: FDA-Public Use
  Company Number: GB-GLAXOSMITHKLINE-B0857051A

PATIENT
  Age: 43 Year
  Sex: Female

DRUGS (5)
  1. RETIGABINE [Suspect]
     Indication: CONVULSION
     Dosage: 600MG PER DAY
     Route: 048
     Dates: start: 20120529
  2. CALCIUM + VITAMIN D [Concomitant]
  3. TEGRETOL RETARD [Concomitant]
  4. FOLIC ACID [Concomitant]
  5. FERROUS SULPHATE [Concomitant]

REACTIONS (3)
  - Memory impairment [Not Recovered/Not Resolved]
  - Aphasia [Not Recovered/Not Resolved]
  - Quality of life decreased [Not Recovered/Not Resolved]
